FAERS Safety Report 21521842 (Version 1)
Quarter: 2022Q4

REPORT INFORMATION
  Report Type: Report from Study
  Country: GB (occurrence: GB)
  Receive Date: 20221028
  Receipt Date: 20221028
  Transmission Date: 20230113
  Serious: Yes (Other)
  Sender: FDA-Public Use
  Company Number: GB-NOVARTISPH-NVSC2022GB239362

PATIENT
  Sex: Male

DRUGS (1)
  1. OMNITROPE [Suspect]
     Active Substance: SOMATROPIN
     Indication: Growth hormone deficiency
     Dosage: 0.7 MG, QD
     Route: 065

REACTIONS (5)
  - Mobility decreased [Unknown]
  - Anxiety [Unknown]
  - Pain [Unknown]
  - Vomiting [Unknown]
  - Back pain [Unknown]
